FAERS Safety Report 19483927 (Version 16)
Quarter: 2025Q1

REPORT INFORMATION
  Report Type: Report from Study
  Country: US (occurrence: US)
  Receive Date: 20210701
  Receipt Date: 20250217
  Transmission Date: 20250408
  Serious: Yes (Hospitalization)
  Sender: TAKEDA
  Company Number: US-TAKEDA-2021TUS031839

PATIENT
  Age: 81 Year
  Sex: Female
  Weight: 73 kg

DRUGS (44)
  1. HUMAN IMMUNOGLOBULIN G [Suspect]
     Active Substance: HUMAN IMMUNOGLOBULIN G
     Indication: Myasthenia gravis
     Dosage: UNK UNK, QD
     Dates: start: 20210106
  2. HUMAN IMMUNOGLOBULIN G [Suspect]
     Active Substance: HUMAN IMMUNOGLOBULIN G
     Dosage: 35 GRAM, Q4WEEKS
  3. HUMAN IMMUNOGLOBULIN G [Suspect]
     Active Substance: HUMAN IMMUNOGLOBULIN G
     Dosage: 35 GRAM, QD
  4. HUMAN IMMUNOGLOBULIN G [Suspect]
     Active Substance: HUMAN IMMUNOGLOBULIN G
     Dosage: 30 GRAM, Q4WEEKS
     Dates: start: 20210108
  5. HUMAN IMMUNOGLOBULIN G [Suspect]
     Active Substance: HUMAN IMMUNOGLOBULIN G
  6. HUMAN IMMUNOGLOBULIN G [Suspect]
     Active Substance: HUMAN IMMUNOGLOBULIN G
     Dosage: 35 GRAM, BID
  7. HUMAN IMMUNOGLOBULIN G [Suspect]
     Active Substance: HUMAN IMMUNOGLOBULIN G
  8. CARAFATE [Suspect]
     Active Substance: SUCRALFATE
     Indication: Product used for unknown indication
  9. EPINEPHRINE [Concomitant]
     Active Substance: EPINEPHRINE
  10. ACETAMINOPHEN [Concomitant]
     Active Substance: ACETAMINOPHEN
  11. PYRIDOSTIGMINE BROMIDE [Concomitant]
     Active Substance: PYRIDOSTIGMINE BROMIDE
  12. COENZYME Q10 [Concomitant]
     Active Substance: DIETARY SUPPLEMENT\UBIDECARENONE
  13. SODIUM CHLORIDE [Concomitant]
     Active Substance: SODIUM CHLORIDE
  14. HEPARIN [Concomitant]
     Active Substance: HEPARIN SODIUM
  15. VITAMIN D3 [Concomitant]
     Active Substance: CHOLECALCIFEROL
  16. LOSARTAN POTASSIUM [Concomitant]
     Active Substance: LOSARTAN POTASSIUM
  17. ALLOPURINOL [Concomitant]
     Active Substance: ALLOPURINOL
  18. LIDOCAINE [Concomitant]
     Active Substance: LIDOCAINE
  19. LUTEIN [Concomitant]
     Active Substance: LUTEIN
  20. REFRESH OPTIVE [Concomitant]
     Active Substance: CARBOXYMETHYLCELLULOSE SODIUM\GLYCERIN
  21. Omega [Concomitant]
  22. HYDROCORTISONE [Concomitant]
     Active Substance: HYDROCORTISONE
  23. PROTONIX [Concomitant]
     Active Substance: PANTOPRAZOLE SODIUM
  24. DIPHENHYDRAMINE HYDROCHLORIDE [Concomitant]
     Active Substance: DIPHENHYDRAMINE HYDROCHLORIDE
  25. ROSUVASTATIN CALCIUM [Concomitant]
     Active Substance: ROSUVASTATIN CALCIUM
  26. JANUVIA [Concomitant]
     Active Substance: SITAGLIPTIN PHOSPHATE
  27. SODIUM CHLORIDE [Concomitant]
     Active Substance: SODIUM CHLORIDE
  28. PEPCID [Concomitant]
     Active Substance: FAMOTIDINE
  29. METHYLPREDNISOLONE [Concomitant]
     Active Substance: METHYLPREDNISOLONE
  30. ASPIRIN [Concomitant]
     Active Substance: ASPIRIN
  31. FIBERMUCIL [Concomitant]
  32. PHILLIPS COLON HEALTH [Concomitant]
  33. LOSARTAN [Concomitant]
     Active Substance: LOSARTAN
  34. ZETIA [Concomitant]
     Active Substance: EZETIMIBE
  35. DIPHENHYDRAMINE [Concomitant]
     Active Substance: DIPHENHYDRAMINE
  36. Lmx [Concomitant]
  37. CALCIUM PLUS D3 [Concomitant]
  38. POTASSIUM [Concomitant]
     Active Substance: POTASSIUM
  39. GABAPENTIN [Concomitant]
     Active Substance: GABAPENTIN
  40. ALIGN [Concomitant]
     Active Substance: BIFIDOBACTERIUM LONGUM SUBSP. INFANTIS
  41. B ACTIVE [Concomitant]
  42. GLIMEPIRIDE [Concomitant]
     Active Substance: GLIMEPIRIDE
  43. HYDROCHLOROTHIAZIDE [Concomitant]
     Active Substance: HYDROCHLOROTHIAZIDE
  44. ACTOS [Concomitant]
     Active Substance: PIOGLITAZONE HYDROCHLORIDE

REACTIONS (25)
  - Infusion related reaction [Unknown]
  - Bladder disorder [Unknown]
  - Urinary incontinence [Unknown]
  - Infusion site rash [Unknown]
  - Infusion site swelling [Unknown]
  - Fluid retention [Unknown]
  - Urinary tract infection [Unknown]
  - Mobility decreased [Unknown]
  - Tenderness [Unknown]
  - Rash macular [Unknown]
  - Poor venous access [Unknown]
  - Urine odour abnormal [Unknown]
  - Musculoskeletal discomfort [Unknown]
  - Peripheral swelling [Unknown]
  - Tooth infection [Unknown]
  - Off label use [Unknown]
  - Pulmonary pain [Recovering/Resolving]
  - Swelling [Unknown]
  - Infusion site extravasation [Unknown]
  - Oedema peripheral [Unknown]
  - Pain [Unknown]
  - Pain in extremity [Unknown]
  - Paraesthesia [Recovered/Resolved]
  - Pruritus [Unknown]
  - Nausea [Recovered/Resolved]

NARRATIVE: CASE EVENT DATE: 20210106
